FAERS Safety Report 7658253-2 (Version None)
Quarter: 2011Q3

REPORT INFORMATION
  Report Type: 
  Country: None (occurrence: None)
  Receive Date: 20110804
  Receipt Date: 20110804
  Transmission Date: 20111222
  Serious: No
  Sender: FDA-Public Use
  Company Number: None

PATIENT
  Age: 68 Year
  Sex: Male

DRUGS (2)
  1. DIAZEPAM [Suspect]
     Dosage: 5MG Q8H PO
     Route: 048
     Dates: start: 20110715, end: 20110718
  2. OXYBUTYNIN [Suspect]
     Dosage: 5MG TID PO
     Route: 048
     Dates: start: 20110715, end: 20110719

REACTIONS (2)
  - DELIRIUM [None]
  - ILL-DEFINED DISORDER [None]
